FAERS Safety Report 11795748 (Version 2)
Quarter: 2015Q4

REPORT INFORMATION
  Report Type: Spontaneous
  Country: FR (occurrence: FR)
  Receive Date: 20151202
  Receipt Date: 20151218
  Transmission Date: 20160305
  Serious: Yes (Other)
  Sender: FDA-Public Use
  Company Number: FR-009507513-1511FRA013462

PATIENT
  Age: 27 Year
  Sex: Female
  Weight: 47 kg

DRUGS (2)
  1. NEXPLANON [Suspect]
     Active Substance: ETONOGESTREL
     Indication: CONTRACEPTION
     Dosage: UNK
     Route: 059
     Dates: start: 201311
  2. ALTIM [Concomitant]
     Active Substance: CORTIVAZOL
     Indication: TENDON DISORDER
     Dosage: UNK
     Dates: start: 201511, end: 201511

REACTIONS (7)
  - Pain in extremity [Not Recovered/Not Resolved]
  - Abortion spontaneous [Unknown]
  - Tendon injury [Not Recovered/Not Resolved]
  - Accident at work [Not Recovered/Not Resolved]
  - Pregnancy with contraceptive device [Recovered/Resolved]
  - Unintended pregnancy [Recovered/Resolved]
  - Menstruation irregular [Unknown]

NARRATIVE: CASE EVENT DATE: 201311
